FAERS Safety Report 17269190 (Version 3)
Quarter: 2020Q3

REPORT INFORMATION
  Report Type: Spontaneous
  Country: US (occurrence: US)
  Receive Date: 20200114
  Receipt Date: 20200714
  Transmission Date: 20201102
  Serious: No
  Sender: FDA-Public Use
  Company Number: US-VANDA PHARMACEUTICALS, INC-2019TASUS003544

PATIENT
  Sex: Male

DRUGS (6)
  1. HETLIOZ [Suspect]
     Active Substance: TASIMELTEON
     Indication: NON-24-HOUR SLEEP-WAKE DISORDER
     Dosage: 20 MG, QD EVERY 24 HOURS 1 HOUR BEFORE BED
     Route: 048
     Dates: start: 20191003
  2. PROBIOTIC 10 [Concomitant]
     Active Substance: DIETARY SUPPLEMENT\PROBIOTICS
     Indication: PRODUCT USED FOR UNKNOWN INDICATION
     Dosage: 70 MG, UNK
  3. ALPRAZOLAM. [Concomitant]
     Active Substance: ALPRAZOLAM
     Indication: PRODUCT USED FOR UNKNOWN INDICATION
     Dosage: 0.25 MG, UNK
  4. OSTEO BI?FLEX                      /01431201/ [Concomitant]
     Indication: PRODUCT USED FOR UNKNOWN INDICATION
     Dosage: 1500 MG, UNK
  5. RANITIDINE HCL [Concomitant]
     Active Substance: RANITIDINE HYDROCHLORIDE
     Indication: PRODUCT USED FOR UNKNOWN INDICATION
     Dosage: 150 MG, UNK
  6. AMLODIPINE BESYLATE. [Concomitant]
     Active Substance: AMLODIPINE BESYLATE
     Indication: PRODUCT USED FOR UNKNOWN INDICATION
     Dosage: 10 MG, UNK

REACTIONS (13)
  - Memory impairment [Unknown]
  - Somnolence [Unknown]
  - Therapeutic product effect delayed [Unknown]
  - Drug ineffective [Unknown]
  - Dysarthria [Unknown]
  - Insomnia [Unknown]
  - Treatment noncompliance [Unknown]
  - Fatigue [Not Recovered/Not Resolved]
  - Dry mouth [Unknown]
  - Anxiety [Unknown]
  - Pollakiuria [Unknown]
  - Disorientation [Not Recovered/Not Resolved]
  - Middle insomnia [Not Recovered/Not Resolved]
